FAERS Safety Report 5310258-2 (Version None)
Quarter: 2007Q2

REPORT INFORMATION
  Report Type: 
  Country: None (occurrence: None)
  Receive Date: 20070427
  Receipt Date: 20070413
  Transmission Date: 20071010
  Serious: Yes (Hospitalization)
  Sender: FDA-Public Use
  Company Number: US-SHR-US-2006-018682

PATIENT
  Age: 49 Year
  Sex: Female
  Weight: 82.54 kg

DRUGS (26)
  1. BETASERON [Suspect]
     Indication: RELAPSING-REMITTING MULTIPLE SCLEROSIS
     Dosage: UNK, EVERY 2D
     Route: 058
     Dates: start: 20041231, end: 20060505
  2. BETASERON [Suspect]
     Dosage: .25 ML, 3X/WEEK
     Route: 058
     Dates: start: 20060516
  3. AMBIEN [Concomitant]
     Indication: INSOMNIA
     Dosage: 10 MG, BED T. PRN
     Route: 048
     Dates: start: 20050509, end: 20051001
  4. ALBUTEROL [Concomitant]
     Dosage: 2 PUFF, AS REQ'D
     Route: 055
     Dates: start: 20050301, end: 20050304
  5. LEVAQUIN [Concomitant]
     Indication: PNEUMONIA
     Dosage: 500 MG, 1X/DAY
     Route: 048
     Dates: start: 20050626, end: 20050705
  6. CORTICOSTEROIDS [Concomitant]
     Indication: ASTHMA
     Dosage: UNK, AS REQ'D
  7. CENTRUM [Concomitant]
     Indication: SUPPLEMENTATION THERAPY
     Dosage: 1 TAB(S), 1X/DAY
     Route: 048
     Dates: start: 20041208
  8. MOTRIN [Concomitant]
     Indication: HEADACHE
     Dosage: 400 MG, AS REQ'D
     Route: 048
     Dates: start: 19800101
  9. NEXIUM [Concomitant]
     Dosage: 20 MG, 1X/DAY
     Route: 048
     Dates: start: 20050202, end: 20050302
  10. TYLENOL [Concomitant]
     Indication: PROPHYLAXIS
     Dosage: 2 TAB(S), BED T.
     Route: 048
     Dates: start: 20050102, end: 20060101
  11. LEXAPRO [Concomitant]
     Indication: DEPRESSION
     Dosage: 10 MG, 1X/DAY
     Route: 048
     Dates: start: 20050619, end: 20050702
  12. LEXAPRO [Concomitant]
     Dosage: 20 MG, 1X/DAY
     Route: 048
     Dates: start: 20050703, end: 20060201
  13. LEXAPRO [Concomitant]
     Dosage: 20 MG, 1X/DAY
     Route: 048
     Dates: start: 20060501
  14. HYDROCORTISONE [Concomitant]
     Indication: INJECTION SITE REACTION
     Dosage: 1 %, AS REQ'D
     Route: 061
     Dates: start: 20050101, end: 20050901
  15. VICKS 44D COUGH + HEAD CONGESTION RELIEF [Concomitant]
     Dosage: 30 MG, AS REQ'D
     Route: 048
     Dates: start: 20050503, end: 20050504
  16. INFLUENZA VACCINE [Concomitant]
     Indication: PROPHYLAXIS
     Dosage: .5 ML, 1 DOSE
     Route: 030
     Dates: start: 20051005, end: 20051005
  17. PREDNISONE TAB [Concomitant]
     Dosage: 10 MG, 1X/DAY
     Route: 048
     Dates: start: 20050626, end: 20050709
  18. SEREVENT [Concomitant]
     Indication: ASTHMA
     Dosage: 50 MG, 2X/DAY
     Route: 055
     Dates: start: 20050626, end: 20050705
  19. IRON [Concomitant]
     Dosage: 65 MG, 1X/DAY
     Route: 048
     Dates: start: 20050626, end: 20060401
  20. VITAMIN B-12 [Concomitant]
     Indication: VITAMIN SUPPLEMENTATION
     Dosage: 250 A?G, 1X/DAY
     Route: 048
     Dates: start: 20051001, end: 20051101
  21. NYQUIL [Concomitant]
     Dosage: 30 ML, AS REQ'D
     Route: 048
     Dates: start: 20051213, end: 20051220
  22. PROVIGIL [Concomitant]
     Indication: FATIGUE
     Dosage: 200 MG, QAM
     Route: 048
     Dates: start: 20060407
  23. IBUPROFEN [Concomitant]
     Indication: BACK PAIN
     Dosage: 400 MG, 3X/DAY PRN
     Route: 048
     Dates: start: 20060520
  24. ALBUTEROL [Concomitant]
     Indication: ASTHMA
     Dosage: 2 PUFF, AS REQ'D
     Route: 055
     Dates: start: 19850101
  25. TYLENOL [Concomitant]
     Indication: INSOMNIA
     Dosage: 2 TAB(S), BED T. PRN
     Dates: start: 20050101, end: 20051001
  26. QVAR 40 [Concomitant]
     Dosage: 80 A?G, 2X/DAY
     Route: 055
     Dates: start: 20050626, end: 20050705

REACTIONS (2)
  - BRONCHITIS [None]
  - STATUS ASTHMATICUS [None]
